FAERS Safety Report 9234675 (Version 2)
Quarter: 2013Q2

REPORT INFORMATION
  Report Type: Report from Study
  Country: SE (occurrence: SE)
  Receive Date: 20130416
  Receipt Date: 20130612
  Transmission Date: 20140414
  Serious: Yes (Hospitalization)
  Sender: FDA-Public Use
  Company Number: SE-UCBSA-083076

PATIENT
  Age: 39 Year
  Sex: Female

DRUGS (3)
  1. CIMZIA [Suspect]
     Indication: PSORIATIC ARTHROPATHY
     Dosage: DOSAGE: 200 MG
     Route: 058
     Dates: start: 20120220, end: 20130214
  2. PREDNISOLONE [Concomitant]
     Dosage: 10 MG
     Dates: start: 20011102
  3. PREDNISOLONE [Concomitant]

REACTIONS (1)
  - Arthritis bacterial [Unknown]
